FAERS Safety Report 6178190-2 (Version None)
Quarter: 2009Q2

REPORT INFORMATION
  Report Type: 
  Country: None (occurrence: None)
  Receive Date: 20090504
  Receipt Date: 20090423
  Transmission Date: 20091009
  Serious: Yes (Other)
  Sender: FDA-Public Use
  Company Number: US-JNJFOC-20090405918

PATIENT
  Age: 46 Year
  Sex: Female
  Weight: 88.45 kg

DRUGS (1)
  1. INVEGA [Suspect]
     Indication: BIPOLAR DISORDER
     Route: 048

REACTIONS (3)
  - ANORGASMIA [None]
  - BREAST DISCHARGE [None]
  - DROOLING [None]
